FAERS Safety Report 17673552 (Version 4)
Quarter: 2021Q1

REPORT INFORMATION
  Report Type: Spontaneous
  Country: US (occurrence: US)
  Receive Date: 20200415
  Receipt Date: 20210215
  Transmission Date: 20210419
  Serious: Yes (Death, Hospitalization, Other)
  Sender: FDA-Public Use
  Company Number: US-NAPPMUNDI-USA-2020-0151710

PATIENT
  Age: 63 Year
  Sex: Female

DRUGS (4)
  1. MORPHINE SULFATE (SIMILAR TO NDA 19?516) [Suspect]
     Active Substance: MORPHINE SULFATE
     Indication: BREAKTHROUGH PAIN
     Dosage: 15 MG, UNK
     Route: 048
     Dates: end: 2003
  2. OXYCONTIN [Suspect]
     Active Substance: OXYCODONE HYDROCHLORIDE
     Indication: BACK DISORDER
     Route: 048
  3. OXYCODONE HCL CR TABLETS (SIMILAR TO NDA 22?272) [Suspect]
     Active Substance: OXYCODONE HYDROCHLORIDE
     Indication: PRODUCT USED FOR UNKNOWN INDICATION
     Dosage: UNKNOWN DOSE
     Route: 048
  4. MS CONTIN [Suspect]
     Active Substance: MORPHINE SULFATE
     Indication: PRODUCT USED FOR UNKNOWN INDICATION
     Dosage: UNKNOWN DOSE
     Route: 048

REACTIONS (13)
  - Death [Fatal]
  - Schizophrenia [Unknown]
  - Depression [Unknown]
  - Quality of life decreased [Unknown]
  - Congenital anomaly [Unknown]
  - Learning disability [Unknown]
  - Dependence [Unknown]
  - Hallucination [Unknown]
  - Product administration error [Unknown]
  - Disability [Unknown]
  - Overdose [Unknown]
  - Bipolar disorder [Unknown]
  - Cardiac disorder [Unknown]

NARRATIVE: CASE EVENT DATE: 2003
